FAERS Safety Report 4896765-5 (Version None)
Quarter: 2006Q1

REPORT INFORMATION
  Report Type: 
  Country: None (occurrence: None)
  Receive Date: 20060126
  Receipt Date: 20060117
  Transmission Date: 20060701
  Serious: Yes (Hospitalization)
  Sender: FDA-Public Use
  Company Number: 2006-00188

PATIENT
  Age: 22 Month
  Sex: Female

DRUGS (7)
  1. QUININE SULFATE [Suspect]
     Indication: MALARIA
     Dosage: SEE IMAGE
     Route: 042
  2. QUININE SULFATE [Suspect]
     Indication: MALARIA
     Dosage: SEE IMAGE
     Route: 042
  3. QUININE SULFATE [Suspect]
     Indication: MALARIA
     Dosage: SEE IMAGE
     Route: 042
  4. QUININE SULFATE [Suspect]
     Indication: MALARIA
     Dosage: SEE IMAGE
     Route: 042
  5. PHENYTOIN [Suspect]
  6. VALPROATE SODIUM [Concomitant]
  7. TOPIRAMATE [Concomitant]

REACTIONS (2)
  - DRUG INEFFECTIVE [None]
  - DRUG INTERACTION [None]
